FAERS Safety Report 13454859 (Version 1)
Quarter: 2017Q2

REPORT INFORMATION
  Report Type: Spontaneous
  Country: US (occurrence: US)
  Receive Date: 20170418
  Receipt Date: 20170418
  Transmission Date: 20170830
  Serious: Yes (Other)
  Sender: FDA-Public Use
  Company Number: US-ASTRAZENECA-2017SE38292

PATIENT
  Age: 53 Year
  Sex: Female
  Weight: 64.2 kg

DRUGS (10)
  1. TRIAMCINOLONE [Concomitant]
     Active Substance: TRIAMCINOLONE
     Dosage: TWO TIMES A DAY
     Route: 061
  2. ARIMIDEX [Suspect]
     Active Substance: ANASTROZOLE
     Route: 048
     Dates: start: 201503, end: 201511
  3. AROMASIN [Suspect]
     Active Substance: EXEMESTANE
     Indication: BREAST CANCER FEMALE
     Route: 048
     Dates: start: 201608
  4. VITAMIN D3 [Concomitant]
     Active Substance: CHOLECALCIFEROL
     Indication: VITAMIN D DEFICIENCY
     Dosage: 1 CAP ORAL 3X WEEK FOR 6 WEEKS, THEN 2X WEEK FOR 6 WEEKS, THEN 1 X WEEK FOR 6 WEEKS, PRN, HYPOVIT...
     Route: 048
  5. NAPROXEN. [Concomitant]
     Active Substance: NAPROXEN
     Indication: PAIN
     Route: 048
  6. TRIAMCINOLONE [Concomitant]
     Active Substance: TRIAMCINOLONE
     Dosage: TWO TIMES A DAY
     Route: 061
  7. EFFEXOR XR [Concomitant]
     Active Substance: VENLAFAXINE HYDROCHLORIDE
     Route: 048
  8. INFLUENZA VIRUS VACCINE [Suspect]
     Active Substance: INFLUENZA VIRUS VACCINE
     Dosage: ONE TIME
     Route: 030
  9. AROMASIN [Suspect]
     Active Substance: EXEMESTANE
     Indication: BREAST CANCER
     Route: 048
     Dates: start: 201608
  10. K-DUR [Concomitant]
     Active Substance: POTASSIUM CHLORIDE
     Route: 048

REACTIONS (8)
  - Mammogram abnormal [Unknown]
  - Back pain [Unknown]
  - Anxiety [Unknown]
  - Paraesthesia [Unknown]
  - Weight increased [Unknown]
  - Hot flush [Unknown]
  - Sleep disorder [Unknown]
  - Arthralgia [Unknown]
